FAERS Safety Report 12190101 (Version 1)
Quarter: 2016Q1

REPORT INFORMATION
  Report Type: Spontaneous
  Country: US (occurrence: None)
  Receive Date: 20160317
  Receipt Date: 20160317
  Transmission Date: 20160526
  Serious: No
  Sender: FDA-Public Use
  Company Number: None

PATIENT
  Age: 66 Year
  Sex: Female
  Weight: 74.84 kg

DRUGS (5)
  1. MULTI-VITAMIN [Concomitant]
     Active Substance: .ALPHA.-TOCOPHEROL ACETATE, DL-\ASCORBIC ACID\CYANOCOBALAMIN\FLUORIDE ION\FOLIC ACID\NIACIN\PYRIDOXINE\RIBOFLAVIN\THIAMINE\VITAMIN A\VITAMIN D
  2. ANTI-HISTAMINE [Concomitant]
     Active Substance: ANTIHISTAMINES NOS
  3. BELVIQ [Suspect]
     Active Substance: LORCASERIN HYDROCHLORIDE
     Indication: OBESITY
     Dosage: 1 PILL TWICE DAILY (2 PILLS) TWICE DAILY TAKEN BY MOUTH
     Route: 048
     Dates: start: 20150919, end: 20151215
  4. CRANBERRY PILLS [Concomitant]
  5. OMERPERZOLE [Concomitant]

REACTIONS (2)
  - Memory impairment [None]
  - Aphasia [None]

NARRATIVE: CASE EVENT DATE: 20151215
